FAERS Safety Report 15657379 (Version 3)
Quarter: 2020Q3

REPORT INFORMATION
  Report Type: Spontaneous
  Country: US (occurrence: US)
  Receive Date: 20181126
  Receipt Date: 20200805
  Transmission Date: 20201102
  Serious: No
  Sender: FDA-Public Use
  Company Number: US-SAKK-2018SA179647AA

PATIENT

DRUGS (4)
  1. LANTUS SOLOSTAR [Suspect]
     Active Substance: INSULIN GLARGINE
     Dosage: 11 IU, QD,AT NIGHT
     Route: 065
     Dates: start: 201804
  2. LANTUS SOLOSTAR [Suspect]
     Active Substance: INSULIN GLARGINE
     Indication: TYPE 2 DIABETES MELLITUS
     Dosage: VERY LITTLE (DOSING DETAILS: UNKNOWN)
     Route: 065
     Dates: start: 2006
  3. HUMALOG [Concomitant]
     Active Substance: INSULIN LISPRO
     Dosage: IN THE MORNING
     Route: 065
  4. LANTUS SOLOSTAR [Suspect]
     Active Substance: INSULIN GLARGINE
     Dosage: 12 IU, QD,AT NIGHT
     Route: 065
     Dates: start: 2016

REACTIONS (5)
  - Hypoaesthesia [Unknown]
  - Blood glucose increased [Unknown]
  - Skin discolouration [Unknown]
  - Drug ineffective [Unknown]
  - Headache [Unknown]

NARRATIVE: CASE EVENT DATE: 2006
